FAERS Safety Report 10191077 (Version 1)
Quarter: 2014Q2

REPORT INFORMATION
  Report Type: Spontaneous
  Country: US (occurrence: None)
  Receive Date: 20140521
  Receipt Date: 20140521
  Transmission Date: 20141212
  Serious: Yes (Life-Threatening, Hospitalization)
  Sender: FDA-Public Use
  Company Number: None

PATIENT
  Age: 83 Year
  Sex: Female
  Weight: 85.7 kg

DRUGS (5)
  1. PRADAXA [Suspect]
     Indication: ATRIAL FIBRILLATION
     Dosage: 1 TABLET BID ORAL
     Route: 048
  2. CARDIZEM CD [Concomitant]
  3. CYMBALTA [Concomitant]
  4. NORCO [Concomitant]
  5. ZANTAC [Concomitant]

REACTIONS (6)
  - Gastrointestinal haemorrhage [None]
  - Acidosis [None]
  - Altered state of consciousness [None]
  - Hypotension [None]
  - Renal failure acute [None]
  - Shock haemorrhagic [None]
